FAERS Safety Report 13747670 (Version 5)
Quarter: 2017Q4

REPORT INFORMATION
  Report Type: Spontaneous
  Country: US (occurrence: US)
  Receive Date: 20170712
  Receipt Date: 20171206
  Transmission Date: 20180320
  Serious: No
  Sender: FDA-Public Use
  Company Number: US-TEVA-785557ACC

PATIENT
  Sex: Female

DRUGS (11)
  1. COPAXONE [Suspect]
     Active Substance: GLATIRAMER ACETATE
     Dosage: PRE FILLED SYRINGE
     Route: 058
     Dates: start: 20130820
  2. PANTOPRAZOLE [Concomitant]
     Active Substance: PANTOPRAZOLE
  3. VITAMIN D [Concomitant]
     Active Substance: CHOLECALCIFEROL
     Dosage: 50,000 U
  4. NORCO [Concomitant]
     Active Substance: ACETAMINOPHEN\HYDROCODONE BITARTRATE
     Dosage: FORM STRENGTH: 735/325MG
  5. TEMAZEPAM. [Concomitant]
     Active Substance: TEMAZEPAM
  6. LINZESS [Concomitant]
     Active Substance: LINACLOTIDE
  7. ZANAFLEX [Concomitant]
     Active Substance: TIZANIDINE HYDROCHLORIDE
  8. COPAXONE [Suspect]
     Active Substance: GLATIRAMER ACETATE
     Indication: MULTIPLE SCLEROSIS
     Dosage: PRE FILLED SYRINGE
     Route: 058
     Dates: start: 20140204
  9. BACLOFEN. [Concomitant]
     Active Substance: BACLOFEN
  10. RANITIDINE. [Concomitant]
     Active Substance: RANITIDINE
  11. DIAZEPAM. [Concomitant]
     Active Substance: DIAZEPAM

REACTIONS (8)
  - Visual impairment [Not Recovered/Not Resolved]
  - Malaise [Not Recovered/Not Resolved]
  - Injection site reaction [Not Recovered/Not Resolved]
  - Fall [Not Recovered/Not Resolved]
  - Headache [Not Recovered/Not Resolved]
  - Dizziness [Not Recovered/Not Resolved]
  - Hypoaesthesia [Not Recovered/Not Resolved]
  - Motor dysfunction [Not Recovered/Not Resolved]
